FAERS Safety Report 4925122-8 (Version None)
Quarter: 2006Q1

REPORT INFORMATION
  Report Type: 
  Country: None (occurrence: None)
  Receive Date: 20060228
  Receipt Date: 20051115
  Transmission Date: 20060701
  Serious: No
  Sender: FDA-Public Use
  Company Number: US-GLAXOSMITHKLINE-A0582372A

PATIENT
  Age: 65 Year
  Sex: Male

DRUGS (7)
  1. AVODART [Suspect]
     Indication: BENIGN PROSTATIC HYPERPLASIA
     Dosage: .05MG PER DAY
     Route: 048
     Dates: start: 20050815
  2. LIPITOR [Concomitant]
  3. NORVASC [Concomitant]
  4. ASPIRIN [Concomitant]
  5. TRAZODONE [Concomitant]
  6. SAW PALMETTO [Concomitant]
  7. VITAMINES [Concomitant]

REACTIONS (4)
  - DRUG INEFFECTIVE [None]
  - MICTURITION DISORDER [None]
  - POLLAKIURIA [None]
  - URINE FLOW DECREASED [None]
